FAERS Safety Report 7401593-2 (Version None)
Quarter: 2011Q2

REPORT INFORMATION
  Report Type: 
  Country: None (occurrence: None)
  Receive Date: 20110408
  Receipt Date: 20110330
  Transmission Date: 20111010
  Serious: No
  Sender: FDA-Public Use
  Company Number: US-BIOGENIDEC-2010BI041855

PATIENT
  Age: 43 Year
  Sex: Female

DRUGS (1)
  1. TYSABRI [Suspect]
     Indication: MULTIPLE SCLEROSIS
     Route: 042
     Dates: start: 20090929, end: 20110211

REACTIONS (5)
  - HERPES ZOSTER [None]
  - CAMPYLOBACTER INFECTION [None]
  - CONJUNCTIVITIS INFECTIVE [None]
  - UPPER RESPIRATORY TRACT INFECTION [None]
  - TONSILLITIS [None]
